FAERS Safety Report 7818128-2 (Version None)
Quarter: 2011Q4

REPORT INFORMATION
  Report Type: 
  Country: None (occurrence: None)
  Receive Date: 20111017
  Receipt Date: 20100715
  Transmission Date: 20120403
  Serious: Yes (Other)
  Sender: FDA-Public Use
  Company Number: US-JNJFOC-20111005526

PATIENT
  Sex: Female

DRUGS (3)
  1. TYLENOL-500 [Suspect]
     Indication: ROAD TRAFFIC ACCIDENT
     Route: 065
  2. TYLENOL-500 [Suspect]
     Route: 065
  3. MOTRIN [Suspect]
     Indication: PRODUCT USED FOR UNKNOWN INDICATION
     Route: 065

REACTIONS (6)
  - ABDOMINAL PAIN UPPER [None]
  - FATIGUE [None]
  - HAEMORRHAGE [None]
  - BLOOD PRESSURE DECREASED [None]
  - PAIN [None]
  - PRODUCT ODOUR ABNORMAL [None]
